FAERS Safety Report 6493131-6 (Version None)
Quarter: 2009Q4

REPORT INFORMATION
  Report Type: 
  Country: None (occurrence: None)
  Receive Date: 20091209
  Receipt Date: 20091124
  Transmission Date: 20100525
  Serious: Yes (Other)
  Sender: FDA-Public Use
  Company Number: 233854K09USA

PATIENT
  Age: 19 Year
  Sex: Female
  Weight: 97 kg

DRUGS (3)
  1. REBIF [Suspect]
     Indication: MULTIPLE SCLEROSIS
     Dosage: 44 MCG, 3 IN 1 WEEKS, SUBCUTANEOUS
     Route: 058
     Dates: start: 20080418
  2. PROVENTIL [Concomitant]
  3. ALBUTEROL [Concomitant]

REACTIONS (2)
  - LUMBAR PUNCTURE ABNORMAL [None]
  - SYSTEMIC LUPUS ERYTHEMATOSUS [None]
